FAERS Safety Report 9743257 (Version 4)
Quarter: 2014Q1

REPORT INFORMATION
  Report Type: Report from Study
  Country: JP (occurrence: JP)
  Receive Date: 20131210
  Receipt Date: 20140318
  Transmission Date: 20141002
  Serious: Yes (Death)
  Sender: FDA-Public Use
  Company Number: JP-GLAXOSMITHKLINE-B0951565A

PATIENT
  Age: 78 Year
  Sex: Male

DRUGS (12)
  1. ARZERRA [Suspect]
     Indication: CHRONIC LYMPHOCYTIC LEUKAEMIA
     Dosage: 300MG PER DAY
     Route: 042
     Dates: start: 20131118, end: 20131118
  2. ARZERRA [Suspect]
     Indication: CHRONIC LYMPHOCYTIC LEUKAEMIA
     Dosage: 2000MG PER DAY
     Route: 042
     Dates: start: 20131125, end: 20131125
  3. ARZERRA [Suspect]
     Indication: CHRONIC LYMPHOCYTIC LEUKAEMIA
     Dosage: 2000MG PER DAY
     Route: 042
     Dates: start: 20131202, end: 20131202
  4. SOLU-CORTEF [Concomitant]
     Dosage: 100MG PER DAY
     Dates: start: 20131118, end: 20131118
  5. SOLU-CORTEF [Concomitant]
     Dosage: 100MG PER DAY
     Dates: start: 20131125, end: 20131125
  6. SOLU-CORTEF [Concomitant]
     Dosage: 100MG PER DAY
     Dates: start: 20131202, end: 20131202
  7. ACETAMINOPHEN [Concomitant]
     Dosage: 600MG PER DAY
     Route: 065
     Dates: start: 20131118, end: 20131118
  8. ACETAMINOPHEN [Concomitant]
     Dosage: 600MG PER DAY
     Route: 065
     Dates: start: 20131125, end: 20131125
  9. ACETAMINOPHEN [Concomitant]
     Dosage: 600MG PER DAY
     Route: 065
     Dates: start: 20131202, end: 20131202
  10. CHLOR-TRIMETON [Concomitant]
     Dosage: 10MG PER DAY
     Route: 065
     Dates: start: 20131118, end: 20131118
  11. CHLOR-TRIMETON [Concomitant]
     Dosage: 10MG PER DAY
     Route: 065
     Dates: start: 20131125, end: 20131125
  12. CHLOR-TRIMETON [Concomitant]
     Dosage: 10MG PER DAY
     Route: 065
     Dates: start: 20131202, end: 20131202

REACTIONS (2)
  - Pneumonia [Fatal]
  - Respiratory failure [Fatal]
